FAERS Safety Report 9700127 (Version 1)
Quarter: 2013Q4

REPORT INFORMATION
  Report Type: Other
  Country: TW (occurrence: TW)
  Receive Date: 20131121
  Receipt Date: 20131121
  Transmission Date: 20140711
  Serious: Yes (Hospitalization, Other)
  Sender: FDA-Public Use
  Company Number: TW-BRISTOL-MYERS SQUIBB COMPANY-19828037

PATIENT
  Age: 58 Year
  Sex: Male

DRUGS (8)
  1. METFORMIN HCL [Suspect]
     Indication: TYPE 2 DIABETES MELLITUS
  2. BISOPROLOL [Suspect]
     Indication: HYPERTENSION
  3. MYCOPHENOLATE SODIUM [Suspect]
  4. CLARITHROMYCIN [Interacting]
  5. TACROLIMUS [Interacting]
     Indication: IMMUNOSUPPRESSION
  6. ASPIRIN [Concomitant]
  7. GLIMEPIRIDE [Concomitant]
     Indication: TYPE 2 DIABETES MELLITUS
  8. ATORVASTATIN [Concomitant]
     Indication: CORONARY ARTERY DISEASE

REACTIONS (5)
  - Brucellosis [Recovered/Resolved]
  - Liver disorder [Recovered/Resolved]
  - Splenomegaly [Recovered/Resolved]
  - Renal failure acute [Recovered/Resolved]
  - Drug interaction [Recovered/Resolved]
